FAERS Safety Report 6636020-6 (Version None)
Quarter: 2010Q1

REPORT INFORMATION
  Report Type: 
  Country: None (occurrence: None)
  Receive Date: 20100316
  Receipt Date: 20100303
  Transmission Date: 20100710
  Serious: Yes (Disabling, Other)
  Sender: FDA-Public Use
  Company Number: PHHY2010TR12627

PATIENT
  Sex: Male
  Weight: 79 kg

DRUGS (9)
  1. CERTICAN [Suspect]
     Dosage: UNK
     Route: 048
     Dates: start: 20090730, end: 20100201
  2. DILTIAZEM HCL [Concomitant]
     Indication: HYPERTENSION
     Dosage: 1 X 120 MG
     Dates: start: 20020101
  3. DELIX PLUS [Concomitant]
     Indication: HYPERTENSION
     Dosage: 1 X 5 MG
     Dates: start: 20090301
  4. COZAAR [Concomitant]
     Indication: HYPERTENSION
     Dosage: 1 X 50 MG
     Dates: start: 20081101
  5. ATORVASTATIN CALCIUM [Concomitant]
     Indication: HYPERLIPIDAEMIA
     Dosage: 1 X 40 MG
     Dates: start: 20071001
  6. URIKOLIZ [Concomitant]
     Indication: HYPERLIPIDAEMIA
     Dosage: 1 X 150 MG
     Dates: start: 20080801
  7. ROCALTROL [Concomitant]
     Indication: HYPERTHYROIDISM
     Dosage: 1 X 0.5 MG
     Dates: start: 20090501
  8. NOVORAPID [Concomitant]
     Indication: DIABETES MELLITUS
     Dosage: 8 + 8 + 11 U
     Dates: start: 20080401
  9. LEVEMIR [Concomitant]
     Indication: DIABETES MELLITUS
     Dosage: 1 X 18 U
     Dates: start: 20080401

REACTIONS (2)
  - NEPHROTIC SYNDROME [None]
  - PROTEINURIA [None]
